FAERS Safety Report 5320427-3 (Version None)
Quarter: 2007Q2

REPORT INFORMATION
  Report Type: 
  Country: None (occurrence: None)
  Receive Date: 20070509
  Receipt Date: 20070425
  Transmission Date: 20071010
  Serious: Yes (Hospitalization)
  Sender: FDA-Public Use
  Company Number: SI-ROCHE-493700

PATIENT
  Age: 73 Year
  Sex: Female
  Weight: 63 kg

DRUGS (12)
  1. BONIVA [Suspect]
     Dosage: STRENGTH: 3MG/3ML
     Route: 042
  2. PLAVIX [Concomitant]
  3. CRESTOR [Concomitant]
     Dosage: FORMULATION REPORTED AS ^FCT^
  4. CORYOL [Concomitant]
  5. CHOLECALCIFEROL [Concomitant]
     Dosage: DRUG TRADE NAME REPORTED AS ^PLIVIT D3^
  6. MEDROL [Concomitant]
  7. PERINDOPRIL [Concomitant]
     Dosage: DRUG TRADE NAME REPORTED AS ^PREXANIL^
  8. PARACETAMOL [Concomitant]
     Dosage: DRUG TRADE NAME REPORTED AS ^LEKADOL^
  9. ZOLPIDEM [Concomitant]
     Dosage: DRUG TRADE NAME REPORTED AS ^SANVAL^
  10. ORTANOL [Concomitant]
  11. NITRO-DUR [Concomitant]
     Dosage: STRENGTH REPORTED AS 0.4MG/H
     Route: 062
  12. CALCIUM CHLORIDE [Concomitant]

REACTIONS (1)
  - GASTROINTESTINAL HAEMORRHAGE [None]
